FAERS Safety Report 24769097 (Version 3)
Quarter: 2025Q1

REPORT INFORMATION
  Report Type: Spontaneous
  Country: BR (occurrence: BR)
  Receive Date: 20241224
  Receipt Date: 20250211
  Transmission Date: 20250409
  Serious: No
  Sender: AMGEN
  Company Number: BR-AMGEN-BRASP2024243513

PATIENT

DRUGS (2)
  1. PEGFILGRASTIM [Suspect]
     Active Substance: PEGFILGRASTIM
     Indication: Product used for unknown indication
     Route: 065
  2. PEGFILGRASTIM [Suspect]
     Active Substance: PEGFILGRASTIM
     Route: 065

REACTIONS (3)
  - Accidental exposure to product [Unknown]
  - Device leakage [Unknown]
  - Product preparation error [Unknown]

NARRATIVE: CASE EVENT DATE: 20241128
